FAERS Safety Report 6455979-3 (Version None)
Quarter: 2009Q4

REPORT INFORMATION
  Report Type: 
  Country: None (occurrence: None)
  Receive Date: 20091125
  Receipt Date: 20091117
  Transmission Date: 20100525
  Serious: Yes (Other)
  Sender: FDA-Public Use
  Company Number: US-ASTRAZENECA-2009UW03748

PATIENT
  Age: 41 Year
  Sex: Male
  Weight: 104.3 kg

DRUGS (8)
  1. SEROQUEL [Suspect]
     Indication: INSOMNIA
     Dosage: 100 TO 300 MG
     Route: 048
     Dates: start: 20060101
  2. SEROQUEL [Suspect]
     Indication: DEPRESSION
     Dosage: 100 TO 300 MG
     Route: 048
     Dates: start: 20060101
  3. SEROQUEL [Suspect]
     Dosage: 100-400 MG
     Route: 048
     Dates: start: 20070101, end: 20080201
  4. SEROQUEL [Suspect]
     Dosage: 100-400 MG
     Route: 048
     Dates: start: 20070101, end: 20080201
  5. RISPERDAL [Concomitant]
     Dates: start: 20080101
  6. STELAZINE [Concomitant]
     Dates: start: 20090101
  7. PROLIXIN [Concomitant]
     Dates: start: 20070101
  8. THORAZINE [Concomitant]
     Dates: start: 20090101

REACTIONS (7)
  - BLINDNESS TRANSIENT [None]
  - BLOOD CHOLESTEROL INCREASED [None]
  - BLOOD TRIGLYCERIDES INCREASED [None]
  - DIABETES MELLITUS [None]
  - HYPERLIPIDAEMIA [None]
  - INTERVERTEBRAL DISC PROTRUSION [None]
  - STRESS [None]
